FAERS Safety Report 6285434-5 (Version None)
Quarter: 2009Q3

REPORT INFORMATION
  Report Type: 
  Country: None (occurrence: None)
  Receive Date: 20090727
  Receipt Date: 20090716
  Transmission Date: 20100115
  Serious: Yes (Other)
  Sender: FDA-Public Use
  Company Number: JP-BAXTER-2009BH011681

PATIENT
  Age: 11 Year
  Sex: Male

DRUGS (7)
  1. ENDOXAN BAXTER [Suspect]
     Indication: MEDULLOBLASTOMA
     Route: 065
  2. ETOPOSIDE [Suspect]
     Indication: MEDULLOBLASTOMA
     Route: 065
  3. VINCRISTINE SULFATE GENERIC [Suspect]
     Indication: MEDULLOBLASTOMA
     Route: 065
  4. CISPLATIN [Suspect]
     Indication: MEDULLOBLASTOMA
     Route: 065
  5. METHOTREXATE GENERIC [Suspect]
     Indication: MEDULLOBLASTOMA
     Route: 065
  6. THIOTEPA [Suspect]
     Indication: MEDULLOBLASTOMA
     Route: 065
  7. MELPHALAN [Suspect]
     Indication: MEDULLOBLASTOMA
     Route: 065

REACTIONS (1)
  - BONE SARCOMA [None]
